FAERS Safety Report 8269859-4 (Version None)
Quarter: 2012Q2

REPORT INFORMATION
  Report Type: 
  Country: None (occurrence: None)
  Receive Date: 20120410
  Receipt Date: 20120328
  Transmission Date: 20120825
  Serious: Yes (Other)
  Sender: FDA-Public Use
  Company Number: CA-JNJFOC-20120315206

PATIENT
  Sex: Female
  Weight: 58.97 kg

DRUGS (2)
  1. IMURAN [Concomitant]
     Indication: PRODUCT USED FOR UNKNOWN INDICATION
     Route: 048
  2. REMICADE [Suspect]
     Indication: CROHN'S DISEASE
     Route: 042
     Dates: start: 20110309, end: 20120326

REACTIONS (9)
  - EYE INFECTION [None]
  - COLON CANCER RECURRENT [None]
  - PHARYNGITIS STREPTOCOCCAL [None]
  - FUNGAL INFECTION [None]
  - SCARLET FEVER [None]
  - FATIGUE [None]
  - LOWER RESPIRATORY TRACT INFECTION [None]
  - THYROID DISORDER [None]
  - ARTHRALGIA [None]
